FAERS Safety Report 5004609-6 (Version None)
Quarter: 2006Q2

REPORT INFORMATION
  Report Type: 
  Country: None (occurrence: None)
  Receive Date: 20060516
  Receipt Date: 20060516
  Transmission Date: 20061013
  Serious: No
  Sender: FDA-Public Use
  Company Number: None

PATIENT
  Sex: Male
  Weight: 102.0593 kg

DRUGS (1)
  1. LIPITOR [Suspect]
     Dosage: 80 MG ONCE DAILY PO
     Route: 048

REACTIONS (1)
  - GLOBAL AMNESIA [None]
